FAERS Safety Report 14375277 (Version 2)
Quarter: 2018Q1

REPORT INFORMATION
  Report Type: Spontaneous
  Country: IT (occurrence: IT)
  Receive Date: 20180111
  Receipt Date: 20180124
  Transmission Date: 20180509
  Serious: Yes (Hospitalization, Other)
  Sender: FDA-Public Use
  Company Number: IT-ABBVIE-18P-083-2218492-00

PATIENT
  Age: 13 Year
  Sex: Male

DRUGS (9)
  1. SODIUM VALPROATE [Suspect]
     Active Substance: VALPROATE SODIUM
     Indication: PARTIAL SEIZURES
     Route: 065
  2. TOPIRAMATE. [Suspect]
     Active Substance: TOPIRAMATE
     Indication: PARTIAL SEIZURES
     Route: 065
  3. SODIUM VALPROATE [Suspect]
     Active Substance: VALPROATE SODIUM
     Indication: EPILEPSY
  4. PARACETAMOL [Interacting]
     Active Substance: ACETAMINOPHEN
     Indication: PYREXIA
     Route: 065
  5. BUSCO IBUPROFEN [Interacting]
     Active Substance: IBUPROFEN
     Indication: PYREXIA
     Route: 065
  6. TOPIRAMATE. [Suspect]
     Active Substance: TOPIRAMATE
     Indication: EPILEPSY
  7. LAMOTRIGINE. [Suspect]
     Active Substance: LAMOTRIGINE
     Indication: PARTIAL SEIZURES
     Route: 065
  8. LAMOTRIGINE. [Suspect]
     Active Substance: LAMOTRIGINE
     Indication: EPILEPSY
  9. BUSCO IBUPROFEN [Interacting]
     Active Substance: IBUPROFEN
     Route: 065

REACTIONS (17)
  - Angular cheilitis [Unknown]
  - Hypertransaminasaemia [Unknown]
  - Lip oedema [Unknown]
  - Pruritus generalised [Unknown]
  - International normalised ratio increased [Unknown]
  - Drug interaction [Unknown]
  - Acute hepatic failure [Unknown]
  - Overdose [Unknown]
  - Intentional product misuse [Unknown]
  - Drug-induced liver injury [Unknown]
  - Rash maculo-papular [Unknown]
  - Rash [Unknown]
  - Prothrombin time abnormal [Unknown]
  - Alanine aminotransferase increased [Unknown]
  - Aspartate aminotransferase increased [Unknown]
  - Toxicity to various agents [Unknown]
  - Accidental overdose [Unknown]
